FAERS Safety Report 12640191 (Version 1)
Quarter: 2016Q3

REPORT INFORMATION
  Report Type: Report from Study
  Country: CN (occurrence: CN)
  Receive Date: 20160810
  Receipt Date: 20160810
  Transmission Date: 20161109
  Serious: Yes (Death, Hospitalization)
  Sender: FDA-Public Use
  Company Number: CN-ASTELLAS-2016US003897

PATIENT
  Age: 76 Year
  Sex: Male

DRUGS (1)
  1. ERLOTINIB [Suspect]
     Active Substance: ERLOTINIB
     Indication: NON-SMALL CELL LUNG CANCER
     Route: 048
     Dates: start: 20130415

REACTIONS (5)
  - Discomfort [Unknown]
  - Nasopharyngitis [Unknown]
  - Pyrexia [Unknown]
  - Intestinal obstruction [Unknown]
  - Drug resistance [Fatal]

NARRATIVE: CASE EVENT DATE: 20151226
